FAERS Safety Report 15683641 (Version 1)
Quarter: 2018Q4

REPORT INFORMATION
  Report Type: Spontaneous
  Country: FR (occurrence: FR)
  Receive Date: 20181204
  Receipt Date: 20181204
  Transmission Date: 20190205
  Serious: Yes (Other)
  Sender: FDA-Public Use
  Company Number: FR-AUROBINDO-AUR-APL-2018-057416

PATIENT
  Age: 70 Year
  Sex: Female

DRUGS (1)
  1. ATENOLOL FILM-COATED TABLET 100MG [Suspect]
     Active Substance: ATENOLOL
     Indication: HYPERTENSION
     Dosage: 100 MILLIGRAM IN TOTAL
     Route: 048
     Dates: start: 20181105

REACTIONS (3)
  - Medication error [Recovered/Resolved]
  - Wrong dose [Recovered/Resolved]
  - Vertigo [Recovered/Resolved]

NARRATIVE: CASE EVENT DATE: 20181105
